FAERS Safety Report 8505436-5 (Version None)
Quarter: 2012Q3

REPORT INFORMATION
  Report Type: 
  Country: None (occurrence: None)
  Receive Date: 20120712
  Receipt Date: 20070228
  Transmission Date: 20120928
  Serious: Yes (Other)
  Sender: FDA-Public Use
  Company Number: CO-PFIZER INC-2012166153

PATIENT
  Age: 55 Year
  Sex: Female

DRUGS (11)
  1. HYDROCHLOROTHIAZIDE [Concomitant]
     Dosage: 25 MG, 1X/DAY
     Route: 048
  2. ISOSORBIDE DINITRATE [Concomitant]
     Dosage: 5 MG, 1X/DAY
     Route: 048
  3. ACETYLSALICYLIC ACID [Concomitant]
     Dosage: 100 MG, 1X/DAY
     Route: 048
  4. HYDROCHLOROTHIAZIDE [Suspect]
     Dosage: [QUINAPRIL HCL 20MG] / [HYDROCHLOROTHIAZIDE 12.5MG], 2X/DAY
     Route: 048
  5. LIPITOR [Suspect]
     Dosage: 10 MG, 2X/DAY
     Route: 048
  6. OLMESARTAN MEDOXOMIL AND HYDROCHLOROTHIZIDE [Suspect]
     Dosage: [OLMESARTAN MEDOXOMIL 20]/[HYDROCHLOROTHIAZIDE 12.5MG], 2X/DAY
     Route: 048
  7. OLMESARTAN MEDOXOMIL AND HYDROCHLOROTHIZIDE [Suspect]
     Dosage: [OLMESARTAN MEDOXOMIL 20]/[HYDROCHLOROTHIAZIDE 12.5MG], 1X/DAY
     Route: 048
  8. ISOSORBIDE DINITRATE [Concomitant]
     Dosage: 10 MG, EACH 8 HOURS
     Route: 048
  9. LIPITOR [Suspect]
     Dosage: 20 MG, 2X/DAY
     Route: 048
  10. METOPROLOL TARTRATE [Concomitant]
     Dosage: 50 MG, 2X/DAY
     Route: 048
  11. LIPITOR [Suspect]
     Dosage: 20 MG, 1X/DAY
     Route: 048

REACTIONS (9)
  - CEREBROVASCULAR ACCIDENT [None]
  - ANGINA PECTORIS [None]
  - CHEST PAIN [None]
  - ANGIOPATHY [None]
  - CARDIOMYOPATHY [None]
  - HEADACHE [None]
  - DYSPNOEA [None]
  - ACUTE MYOCARDIAL INFARCTION [None]
  - ISCHAEMIA [None]
